FAERS Safety Report 6930239-2 (Version None)
Quarter: 2010Q3

REPORT INFORMATION
  Report Type: 
  Country: None (occurrence: None)
  Receive Date: 20100818
  Receipt Date: 20100806
  Transmission Date: 20110219
  Serious: Yes (Hospitalization)
  Sender: FDA-Public Use
  Company Number: PHHY2010MX52058

PATIENT
  Sex: Female

DRUGS (2)
  1. TRILEPTAL [Suspect]
     Indication: EPILEPSY
     Dosage: 2 DFDAILY
     Dates: start: 20090901
  2. TRILEPTAL [Suspect]
     Dosage: 3 DF DAILY

REACTIONS (3)
  - CONVULSION [None]
  - PHARYNGOTONSILLITIS [None]
  - PYREXIA [None]
